FAERS Safety Report 10169683 (Version 2)
Quarter: 2014Q2

REPORT INFORMATION
  Report Type: Spontaneous
  Country: FR (occurrence: FR)
  Receive Date: 20140513
  Receipt Date: 20140516
  Transmission Date: 20141212
  Serious: Yes (Hospitalization, Other)
  Sender: FDA-Public Use
  Company Number: FR-PFIZER INC-2014126085

PATIENT
  Age: 53 Year
  Sex: Male

DRUGS (10)
  1. LYRICA [Suspect]
     Dosage: 600 MG, DAILY
     Route: 048
  2. TRANXENE [Interacting]
     Dosage: 40 MG, DAILY
     Route: 048
     Dates: end: 20140407
  3. DEPAKOTE [Interacting]
     Dosage: 2000 MG, DAILY
     Route: 048
  4. XEROQUEL LP [Interacting]
     Dosage: 800 MG, DAILY
     Route: 048
     Dates: end: 20140407
  5. NOCTAMID [Interacting]
     Dosage: 2 MG, DAILY
     Route: 048
     Dates: end: 20140407
  6. LOXAPAC [Interacting]
     Dosage: 225 DROPS DAILY
     Route: 048
     Dates: end: 20140407
  7. IDARAC [Interacting]
     Dosage: 600 MG, DAILY
     Route: 048
     Dates: end: 20140407
  8. DAFALGAN CODEINE [Interacting]
     Dosage: 2 DF, DAILY
     Route: 048
     Dates: end: 20140407
  9. BACTRIM [Concomitant]
     Dosage: 800 MG, 2X/DAY
     Route: 048
     Dates: start: 20140404, end: 20140407
  10. XATRAL LP [Concomitant]
     Dosage: 10 MG, DAILY
     Route: 048

REACTIONS (10)
  - Drug interaction [Recovered/Resolved]
  - Disturbance in attention [Recovered/Resolved]
  - Schizophrenia, paranoid type [Unknown]
  - Bronchial obstruction [Unknown]
  - Rhonchi [Unknown]
  - Breath sounds abnormal [Unknown]
  - White blood cell count increased [Unknown]
  - Gamma-glutamyltransferase increased [Unknown]
  - C-reactive protein increased [Unknown]
  - Oxygen saturation decreased [Recovered/Resolved]
